FAERS Safety Report 7135262-3 (Version None)
Quarter: 2010Q4

REPORT INFORMATION
  Report Type: 
  Country: None (occurrence: None)
  Receive Date: 20101203
  Receipt Date: 20101123
  Transmission Date: 20110411
  Serious: Yes (Hospitalization)
  Sender: FDA-Public Use
  Company Number: A0857140A

PATIENT
  Age: 71 Year
  Sex: Female
  Weight: 145 kg

DRUGS (9)
  1. AVANDIA [Suspect]
     Indication: DIABETES MELLITUS
     Dosage: 2MG PER DAY
     Route: 048
     Dates: start: 20060901, end: 20080926
  2. ASPIRIN [Concomitant]
     Dosage: 325MG PER DAY
  3. LANTUS [Concomitant]
  4. LIPITOR [Concomitant]
  5. PAXIL [Concomitant]
  6. PREVACID [Concomitant]
  7. TOPROL-XL [Concomitant]
  8. DIOVAN [Concomitant]
  9. HUMALOG [Concomitant]

REACTIONS (22)
  - AORTIC ARTERIOSCLEROSIS [None]
  - CARDIAC FAILURE CONGESTIVE [None]
  - CARDIO-RESPIRATORY ARREST [None]
  - CELLULITIS [None]
  - CORONARY ARTERY OCCLUSION [None]
  - DIABETIC FOOT [None]
  - DIABETIC KETOACIDOSIS [None]
  - DIARRHOEA [None]
  - ELECTROMECHANICAL DISSOCIATION [None]
  - EXTRASYSTOLES [None]
  - MITRAL VALVE INCOMPETENCE [None]
  - MYOCARDIAL INFARCTION [None]
  - OSTEOMYELITIS [None]
  - PAIN [None]
  - PULMONARY ARTERIAL PRESSURE INCREASED [None]
  - RETCHING [None]
  - SLEEP APNOEA SYNDROME [None]
  - STAPHYLOCOCCAL INFECTION [None]
  - SUPRAVENTRICULAR TACHYCARDIA [None]
  - TRICUSPID VALVE INCOMPETENCE [None]
  - VENTRICULAR FIBRILLATION [None]
  - WOUND INFECTION STAPHYLOCOCCAL [None]
